FAERS Safety Report 13091052 (Version 1)
Quarter: 2017Q1

REPORT INFORMATION
  Report Type: Report from Study
  Country: IT (occurrence: IT)
  Receive Date: 20170106
  Receipt Date: 20170106
  Transmission Date: 20170428
  Serious: Yes (Other)
  Sender: FDA-Public Use
  Company Number: IT-ACCORD-047136

PATIENT

DRUGS (2)
  1. OXALIPLATIN. [Suspect]
     Active Substance: OXALIPLATIN
     Indication: RECTAL ADENOCARCINOMA
     Dosage: LONG COURSE CHEMORADIOTHERAPY 50 MG/ M^2 WEEKLY FOLLOWED BY RADIOTHERAPY
  2. FLUOROURACIL. [Suspect]
     Active Substance: FLUOROURACIL
     Indication: RECTAL ADENOCARCINOMA
     Dosage: LONG COURSE CHEMORADIOTHERAPY FLUOROURACIL 200 MG/M2/DAY WEEKLY FOLLOWED BY RADIOTHERAPY.

REACTIONS (1)
  - Proctitis [Unknown]
